FAERS Safety Report 9348215 (Version 1)
Quarter: 2013Q2

REPORT INFORMATION
  Report Type: Report from Study
  Country: CA (occurrence: CA)
  Receive Date: 20130614
  Receipt Date: 20130614
  Transmission Date: 20140414
  Serious: Yes (Other)
  Sender: FDA-Public Use
  Company Number: CA-JNJFOC-20130604918

PATIENT
  Age: 40 Year
  Sex: Male
  Weight: 85.7 kg

DRUGS (5)
  1. REMICADE [Suspect]
     Indication: COLITIS ULCERATIVE
     Dosage: 2ND LOADING DOSE
     Route: 042
  2. REMICADE [Suspect]
     Indication: COLITIS ULCERATIVE
     Dosage: 2ND LOADING DOSE
     Route: 042
     Dates: start: 20130523
  3. PREDNISONE [Concomitant]
     Dosage: TAPERING
     Route: 048
  4. SYNTHROID [Concomitant]
     Route: 065
  5. IRON [Concomitant]
     Route: 042

REACTIONS (1)
  - Haemorrhoids [Recovering/Resolving]
